FAERS Safety Report 15677828 (Version 1)
Quarter: 2018Q4

REPORT INFORMATION
  Report Type: Not Available
  Country: US (occurrence: US)
  Receive Date: 20181130
  Receipt Date: 20181130
  Transmission Date: 20190205
  Serious: No
  Sender: FDA-Public Use
  Company Number: US-NEUROCRINE BIOSCIENCES INC.-2018NBI03348

PATIENT
  Sex: Female

DRUGS (3)
  1. INGREZZA [Suspect]
     Active Substance: VALBENAZINE
     Route: 048
     Dates: start: 20170720
  2. AMITRIPTYLINE [Concomitant]
     Active Substance: AMITRIPTYLINE
  3. INGREZZA [Suspect]
     Active Substance: VALBENAZINE
     Indication: DYSKINESIA
     Route: 048
     Dates: start: 20170712, end: 20170719

REACTIONS (1)
  - Asthma [Unknown]
